FAERS Safety Report 4985977-8 (Version None)
Quarter: 2006Q2

REPORT INFORMATION
  Report Type: 
  Country: None (occurrence: None)
  Receive Date: 20060419
  Receipt Date: 20060410
  Transmission Date: 20061013
  Serious: Yes (Other)
  Sender: FDA-Public Use
  Company Number: HQWYE731110APR06

PATIENT
  Sex: Female

DRUGS (6)
  1. PANTOLOC                 (PANTOPRAZOLE,  DELAYED RELEASE) [Suspect]
     Dosage: 40 MG 1X PER 1 DAY, ORAL
     Route: 048
  2. ZOPICLONE (ZOPICLONE) [Concomitant]
  3. ALTACE [Concomitant]
  4. METOPROLOL SUCCINATE [Concomitant]
  5. MORPHINE [Concomitant]
  6. GRAVOL TAB [Concomitant]

REACTIONS (1)
  - BURNING SENSATION [None]
